FAERS Safety Report 9742248 (Version 2)
Quarter: 2013Q4

REPORT INFORMATION
  Report Type: Report from Study
  Country: FR (occurrence: FR)
  Receive Date: 20131210
  Receipt Date: 20131223
  Transmission Date: 20140711
  Serious: Yes (Hospitalization)
  Sender: FDA-Public Use
  Company Number: FR-PFIZER INC-2013342637

PATIENT
  Age: 67 Year
  Sex: Male
  Weight: 65 kg

DRUGS (9)
  1. SUTENT [Suspect]
     Indication: PANCREATIC CARCINOMA
     Dosage: UNK
     Route: 048
     Dates: start: 20130515, end: 20131028
  2. KARDEGIC 160 [Concomitant]
     Indication: CEREBROVASCULAR ACCIDENT
     Dosage: 160 UNK, UNK
     Dates: start: 20091014
  3. ESOMEPRAZOLE [Concomitant]
     Indication: GASTROOESOPHAGEAL REFLUX DISEASE
     Dosage: UNK
     Dates: start: 2009
  4. DOMPERIDONE [Concomitant]
     Indication: NAUSEA
     Dosage: UNK
     Dates: start: 2009, end: 20131002
  5. CREON 25000 [Concomitant]
     Indication: PANCREATIC INSUFFICIENCY
     Dosage: 25000 UNK, UNK
     Dates: start: 201104
  6. PRIMPERAN [Concomitant]
     Indication: NAUSEA
     Dosage: UNK
     Dates: start: 20131002
  7. GAVISCON [Concomitant]
     Indication: DYSPEPSIA
     Dosage: UNK
     Dates: start: 20130904
  8. TITANOREINE [Concomitant]
     Indication: HAEMORRHOIDS
     Dosage: UNK
     Dates: start: 20131002
  9. CETAVLON [Concomitant]
     Indication: HAEMORRHOIDS
     Dosage: UNK
     Dates: start: 20131002

REACTIONS (1)
  - Anal fistula [Recovering/Resolving]
